FAERS Safety Report 4306265-9 (Version None)
Quarter: 2004Q1

REPORT INFORMATION
  Report Type: 
  Country: None (occurrence: None)
  Receive Date: 20040225
  Receipt Date: 20030411
  Transmission Date: 20041129
  Serious: No
  Sender: FDA-Public Use
  Company Number: US-BRISTOL-MYERS SQUIBB COMPANY-12246450

PATIENT
  Age: 5 Decade
  Sex: Female
  Weight: 58 kg

DRUGS (2)
  1. EXCEDRIN (MIGRAINE) [Suspect]
     Indication: MIGRAINE
     Route: 048
     Dates: start: 20030411, end: 20030411
  2. MULTIVITAMIN [Concomitant]

REACTIONS (3)
  - NAUSEA [None]
  - PALLOR [None]
  - PARAESTHESIA [None]
